FAERS Safety Report 8146875-4 (Version None)
Quarter: 2012Q1

REPORT INFORMATION
  Report Type: 
  Country: None (occurrence: None)
  Receive Date: 20120217
  Receipt Date: 20120208
  Transmission Date: 20120608
  Serious: Yes (Hospitalization)
  Sender: FDA-Public Use
  Company Number: US-ABBOTT-12P-163-0903115-00

PATIENT
  Sex: Female
  Weight: 54.48 kg

DRUGS (1)
  1. LUPRON DEPOT [Suspect]
     Indication: ENDOMETRIOSIS
     Dosage: ONCE
     Route: 030
     Dates: start: 20111210, end: 20111210

REACTIONS (12)
  - PARALYSIS [None]
  - MUSCULAR WEAKNESS [None]
  - TACHYCARDIA [None]
  - MIGRAINE [None]
  - ARTHRALGIA [None]
  - ABASIA [None]
  - PAIN IN EXTREMITY [None]
  - BONE PAIN [None]
  - CARDIOVASCULAR DISORDER [None]
  - HYPOAESTHESIA [None]
  - PARAESTHESIA [None]
  - ASTHENIA [None]
